FAERS Safety Report 5408941-3 (Version None)
Quarter: 2007Q3

REPORT INFORMATION
  Report Type: 
  Country: None (occurrence: None)
  Receive Date: 20070808
  Receipt Date: 20070727
  Transmission Date: 20080115
  Serious: Yes (Other)
  Sender: FDA-Public Use
  Company Number: US-PFIZER INC-2007063426

PATIENT
  Age: 64 Year
  Sex: Female

DRUGS (10)
  1. CHANTIX [Suspect]
     Indication: SMOKING CESSATION THERAPY
  2. CIPROFLOXACIN [Concomitant]
  3. SIMVASTATIN [Concomitant]
  4. CLOPIDOGREL [Concomitant]
  5. NIACIN [Concomitant]
  6. METOPROLOL SUCCINATE [Concomitant]
  7. LISINOPRIL [Concomitant]
  8. EFFEXOR [Concomitant]
  9. AMBIEN [Concomitant]
  10. NORFLOXACIN [Concomitant]

REACTIONS (3)
  - HALLUCINATION, AUDITORY [None]
  - HALLUCINATION, VISUAL [None]
  - SURGERY [None]
